FAERS Safety Report 25368836 (Version 1)
Quarter: 2025Q2

REPORT INFORMATION
  Report Type: Spontaneous
  Country: US (occurrence: US)
  Receive Date: 20250528
  Receipt Date: 20250528
  Transmission Date: 20250717
  Serious: No
  Sender: ROCHE
  Company Number: US-ROCHE-10000293920

PATIENT
  Sex: Male

DRUGS (1)
  1. OCREVUS [Suspect]
     Active Substance: OCRELIZUMAB
     Indication: Multiple sclerosis
     Dosage: 300 MG/ 10ML
     Route: 042
     Dates: start: 202305

REACTIONS (6)
  - Multiple sclerosis relapse [Recovering/Resolving]
  - Multiple sclerosis [Recovering/Resolving]
  - Eye pain [Recovering/Resolving]
  - Ear pain [Recovering/Resolving]
  - Headache [Recovering/Resolving]
  - Myalgia [Recovering/Resolving]
